FAERS Safety Report 15431472 (Version 4)
Quarter: 2018Q4

REPORT INFORMATION
  Report Type: Spontaneous
  Country: US (occurrence: US)
  Receive Date: 20180926
  Receipt Date: 20181206
  Transmission Date: 20190204
  Serious: Yes (Hospitalization)
  Sender: FDA-Public Use
  Company Number: US-PFIZER INC-2018389607

PATIENT
  Age: 70 Year
  Sex: Female

DRUGS (5)
  1. ARTHROTEC [Suspect]
     Active Substance: DICLOFENAC SODIUM\MISOPROSTOL
     Indication: SARCOIDOSIS
     Dosage: 10 MG, 2X/DAY
     Route: 048
     Dates: start: 19950906, end: 20180811
  2. ARTHROTEC [Suspect]
     Active Substance: DICLOFENAC SODIUM\MISOPROSTOL
     Dosage: UNK UNK, 2X/DAY
     Dates: start: 20070707, end: 20181105
  3. ARTHROTEC [Suspect]
     Active Substance: DICLOFENAC SODIUM\MISOPROSTOL
     Indication: ARTHRITIS
     Dosage: UNK
     Route: 048
     Dates: start: 201111, end: 2017
  4. ALEVE [Concomitant]
     Active Substance: NAPROXEN SODIUM
     Indication: ARTHRALGIA
     Dosage: SOMETIMES, EVERY OTHER DAY
     Dates: start: 20110910, end: 201808
  5. ALEVE [Concomitant]
     Active Substance: NAPROXEN SODIUM
     Dosage: SOMETIMES, EVERY OTHER DAY
     Dates: start: 20180918

REACTIONS (3)
  - Product use in unapproved indication [Unknown]
  - Chronic kidney disease [Unknown]
  - Arthritis [Unknown]

NARRATIVE: CASE EVENT DATE: 201804
